FAERS Safety Report 6022479-4 (Version None)
Quarter: 2008Q4

REPORT INFORMATION
  Report Type: 
  Country: None (occurrence: None)
  Receive Date: 20081230
  Receipt Date: 20081217
  Transmission Date: 20090506
  Serious: Yes (Other)
  Sender: FDA-Public Use
  Company Number: PHHY2008JP31586

PATIENT
  Sex: Male

DRUGS (4)
  1. ZADITEN [Suspect]
     Indication: SEASONAL ALLERGY
     Dosage: UNK
     Dates: start: 20070101
  2. ZADITEN [Suspect]
     Dosage: UNK
     Route: 048
     Dates: start: 20081208, end: 20081208
  3. GASTER [Concomitant]
  4. ZYLORIC [Concomitant]

REACTIONS (4)
  - AMNESIA [None]
  - DISTURBANCE IN ATTENTION [None]
  - IRRITABILITY [None]
  - SOMNOLENCE [None]
